FAERS Safety Report 13138160 (Version 1)
Quarter: 2017Q1

REPORT INFORMATION
  Report Type: Spontaneous
  Country: US (occurrence: US)
  Receive Date: 20170123
  Receipt Date: 20170123
  Transmission Date: 20170428
  Serious: No
  Sender: FDA-Public Use
  Company Number: US-UNITED THERAPEUTICS-UNT-2016-009675

PATIENT
  Age: 61 Year
  Sex: Female
  Weight: 80.73 kg

DRUGS (3)
  1. TYVASO [Suspect]
     Active Substance: TREPROSTINIL
     Indication: PULMONARY ARTERIAL HYPERTENSION
     Dosage: 18-54 MICROGRAMS, QID
     Dates: start: 20160603, end: 201606
  2. TYVASO [Suspect]
     Active Substance: TREPROSTINIL
     Dosage: 6 MICROGRAMS, QID
  3. SILDENAFIL. [Concomitant]
     Active Substance: SILDENAFIL
     Indication: PRODUCT USED FOR UNKNOWN INDICATION

REACTIONS (5)
  - Productive cough [Unknown]
  - Oropharyngeal pain [Unknown]
  - Pulmonary pain [Unknown]
  - Dysphonia [Unknown]
  - Product use issue [Unknown]

NARRATIVE: CASE EVENT DATE: 201606
